FAERS Safety Report 9964944 (Version 2)
Quarter: 2014Q2

REPORT INFORMATION
  Report Type: Spontaneous
  Country: IT (occurrence: IT)
  Receive Date: 20140305
  Receipt Date: 20140414
  Transmission Date: 20141212
  Serious: Yes (Hospitalization)
  Sender: FDA-Public Use
  Company Number: PHHY2014IT024139

PATIENT
  Age: 57 Year
  Sex: Female

DRUGS (6)
  1. KETOPROFEN [Suspect]
     Indication: ORTHODONTIC PROCEDURE
     Dosage: 1 DF, ONCE/SINGLE
     Route: 048
     Dates: start: 20140120, end: 20140120
  2. AMOXICILLIN TRIHYDRATE [Suspect]
     Indication: ORTHODONTIC PROCEDURE
     Dosage: 1 DF, QD
     Route: 048
     Dates: start: 20140120, end: 20140120
  3. SOLDESAM [Concomitant]
  4. TRIATEC [Concomitant]
     Dosage: 5 MG, UNK
     Route: 048
     Dates: start: 20140121
  5. ZOLOFT [Concomitant]
     Dates: start: 20140121
  6. DIBASE [Concomitant]
     Dosage: 2.5 ML, UNK
     Route: 048

REACTIONS (3)
  - Chest pain [Recovered/Resolved]
  - Erythema [Recovered/Resolved]
  - Rash [Recovered/Resolved]
